FAERS Safety Report 5265369-7 (Version None)
Quarter: 2007Q1

REPORT INFORMATION
  Report Type: 
  Country: None (occurrence: None)
  Receive Date: 20070314
  Receipt Date: 20070302
  Transmission Date: 20070707
  Serious: Yes (Other)
  Sender: FDA-Public Use
  Company Number: US-PFIZER INC-2007017029

PATIENT
  Sex: Male

DRUGS (3)
  1. XALATAN [Suspect]
     Indication: INTRAOCULAR PRESSURE TEST
  2. COSOPT [Concomitant]
  3. TIMOPTIC [Concomitant]

REACTIONS (1)
  - MYDRIASIS [None]
